FAERS Safety Report 20779137 (Version 1)
Quarter: 2022Q2

REPORT INFORMATION
  Report Type: Spontaneous
  Country: US (occurrence: None)
  Receive Date: 20220503
  Receipt Date: 20220503
  Transmission Date: 20220721
  Serious: Yes (Hospitalization)
  Sender: FDA-Public Use
  Company Number: None

PATIENT
  Age: 88 Year
  Sex: Female
  Weight: 62.3 kg

DRUGS (1)
  1. APIXABAN [Suspect]
     Active Substance: APIXABAN
     Indication: Atrial fibrillation
     Dosage: FREQUENCY : TWICE A DAY;?
     Route: 048
     Dates: start: 20210709, end: 20220502

REACTIONS (5)
  - Hypertensive urgency [None]
  - Fall [None]
  - Head injury [None]
  - Subdural haematoma [None]
  - Spinal compression fracture [None]

NARRATIVE: CASE EVENT DATE: 20220502
